FAERS Safety Report 9978623 (Version 2)
Quarter: 2015Q1

REPORT INFORMATION
  Report Type: Report from Study
  Country: US (occurrence: US)
  Receive Date: 20140306
  Receipt Date: 20150216
  Transmission Date: 20150721
  Serious: No
  Sender: FDA-Public Use
  Company Number: US-ABBVIE-13P-163-1173913-00

PATIENT
  Age: 45 Year
  Sex: Female

DRUGS (3)
  1. HUMIRA [Suspect]
     Active Substance: ADALIMUMAB
     Indication: CROHN^S DISEASE
     Dates: start: 20131120, end: 20131120
  2. HUMIRA [Suspect]
     Active Substance: ADALIMUMAB
     Dates: start: 20131204, end: 20131204
  3. HUMIRA [Suspect]
     Active Substance: ADALIMUMAB
     Dates: start: 20131218, end: 201401

REACTIONS (13)
  - Sluggishness [Recovering/Resolving]
  - Cardiac flutter [Recovering/Resolving]
  - Hypotension [Recovered/Resolved]
  - Disturbance in attention [Recovering/Resolving]
  - Cough [Recovering/Resolving]
  - Chest discomfort [Recovering/Resolving]
  - Influenza like illness [Recovering/Resolving]
  - Injection site erythema [Recovered/Resolved]
  - Heart rate increased [Recovered/Resolved]
  - Feeling abnormal [Recovering/Resolving]
  - Pain [Recovering/Resolving]
  - Arrhythmia [Unknown]
  - Fatigue [Recovering/Resolving]

NARRATIVE: CASE EVENT DATE: 20131120
